FAERS Safety Report 22806294 (Version 2)
Quarter: 2023Q4

REPORT INFORMATION
  Report Type: Spontaneous
  Country: US (occurrence: US)
  Receive Date: 20230809
  Receipt Date: 20231030
  Transmission Date: 20240110
  Serious: No
  Sender: FDA-Public Use
  Company Number: US-DRL-SPO/USA/23/0172322

PATIENT
  Sex: Female

DRUGS (1)
  1. HALOETTE [Suspect]
     Active Substance: ETHINYL ESTRADIOL\ETONOGESTREL
     Indication: Product used for unknown indication
     Dosage: 0.015MG/0.12MG

REACTIONS (3)
  - Discomfort [Unknown]
  - Device breakage [Unknown]
  - Product quality issue [Unknown]
